FAERS Safety Report 15790091 (Version 1)
Quarter: 2019Q1

REPORT INFORMATION
  Report Type: Report from Study
  Country: US (occurrence: US)
  Receive Date: 20190104
  Receipt Date: 20190104
  Transmission Date: 20190417
  Serious: Yes (Other)
  Sender: FDA-Public Use
  Company Number: US-ASTRAZENECA-2019SE00385

PATIENT

DRUGS (5)
  1. VALACICLOVIR [Concomitant]
     Active Substance: VALACYCLOVIR HYDROCHLORIDE
     Route: 064
  2. DULOXETINE. [Concomitant]
     Active Substance: DULOXETINE
  3. METFORMIN [Concomitant]
     Active Substance: METFORMIN HYDROCHLORIDE
     Route: 064
  4. QUETIAPINE. [Suspect]
     Active Substance: QUETIAPINE
     Indication: PSYCHOTIC DISORDER
     Route: 064
  5. LEVOTHYROXINE, LIOTHYRONINE [Concomitant]
     Route: 064

REACTIONS (2)
  - Pulmonary valve stenosis congenital [Unknown]
  - Congenital pulmonary valve disorder [Unknown]
